FAERS Safety Report 18691602 (Version 3)
Quarter: 2021Q1

REPORT INFORMATION
  Report Type: Report from Study
  Country: KR (occurrence: KR)
  Receive Date: 20210101
  Receipt Date: 20210107
  Transmission Date: 20210419
  Serious: Yes (Hospitalization)
  Sender: FDA-Public Use
  Company Number: KR-CELLTRION INC.-2020KR034583

PATIENT

DRUGS (11)
  1. LENALIDOMIDE [Suspect]
     Active Substance: LENALIDOMIDE
     Indication: PRODUCT USED FOR UNKNOWN INDICATION
     Dosage: STOP DATE: 19?DEC?2020 00:00
  2. TRUXIMA [Suspect]
     Active Substance: RITUXIMAB-ABBS
     Indication: LYMPHOMA
     Dosage: 637.5 MG PER CYCLE, D1 (500 MG)
     Route: 042
     Dates: start: 20201209, end: 20201209
  3. LENALIDOMIDE [Suspect]
     Active Substance: LENALIDOMIDE
     Dosage: UNK
     Dates: start: 20201228
  4. MUCOSTA [Concomitant]
     Active Substance: REBAMIPIDE
     Indication: PROPHYLAXIS
     Dosage: 100 MG, BID
     Route: 048
     Dates: start: 20201211
  5. ACALABRUTINIB. [Suspect]
     Active Substance: ACALABRUTINIB
     Indication: PRODUCT USED FOR UNKNOWN INDICATION
     Dosage: STOP DATE: 19?DEC?2020 00:00
  6. ACALABRUTINIB. [Suspect]
     Active Substance: ACALABRUTINIB
     Dosage: UNK
     Dates: start: 20201223
  7. PARIET [Concomitant]
     Active Substance: RABEPRAZOLE SODIUM
     Indication: PROPHYLAXIS
     Dosage: 10 MG, QD
     Route: 048
     Dates: start: 20201211
  8. SEPTRIN [Concomitant]
     Active Substance: SULFAMETHOXAZOLE\TRIMETHOPRIM
     Indication: PROPHYLAXIS
     Dosage: 480 MG, QD
     Route: 048
     Dates: start: 20201209
  9. TRUXIMA [Suspect]
     Active Substance: RITUXIMAB-ABBS
     Dosage: 637.5 MG PER CYCLE, D1 (100 MG)
     Route: 042
     Dates: start: 20201209, end: 20201209
  10. PREGABA [Concomitant]
     Active Substance: PREGABALIN
     Indication: PAIN PROPHYLAXIS
     Dosage: 150 MG, QD
     Route: 048
     Dates: start: 20201211
  11. BAYER ASPIRIN [Concomitant]
     Active Substance: ASPIRIN
     Indication: PROPHYLAXIS
     Dosage: 100 MG, QD
     Route: 048
     Dates: start: 20201209

REACTIONS (3)
  - Alanine aminotransferase increased [Recovered/Resolved]
  - Rash [Recovered/Resolved]
  - Overdose [Unknown]

NARRATIVE: CASE EVENT DATE: 20201209
